FAERS Safety Report 4520675-6 (Version None)
Quarter: 2004Q4

REPORT INFORMATION
  Report Type: 
  Country: None (occurrence: None)
  Receive Date: 20041203
  Receipt Date: 20041117
  Transmission Date: 20050328
  Serious: No
  Sender: FDA-Public Use
  Company Number: 2004US002285

PATIENT
  Age: 51 Year
  Sex: Female
  Weight: 56.2 kg

DRUGS (7)
  1. ALOXI [Suspect]
     Indication: PROPHYLAXIS OF NAUSEA AND VOMITING
     Dosage: 0.25 MG, SINGLE, IV BOLUS
     Route: 040
     Dates: start: 20041111, end: 20041111
  2. DEXAMETHASONE [Concomitant]
  3. SODIUM CHLORIDE [Concomitant]
  4. HYZAAR [Concomitant]
  5. ZOLOFT [Concomitant]
  6. ASPIRIN [Concomitant]
  7. CALCIUM (CALCIUM) [Concomitant]

REACTIONS (6)
  - BLOOD PRESSURE INCREASED [None]
  - CARDIOVASCULAR DISORDER [None]
  - DRUG HYPERSENSITIVITY [None]
  - PRURITUS [None]
  - RASH MACULAR [None]
  - URTICARIA [None]
